FAERS Safety Report 17425115 (Version 1)
Quarter: 2020Q1

REPORT INFORMATION
  Report Type: Spontaneous
  Country: JP (occurrence: JP)
  Receive Date: 20200217
  Receipt Date: 20200217
  Transmission Date: 20200409
  Serious: Yes (Hospitalization, Other)
  Sender: FDA-Public Use
  Company Number: JP-SA-2020SA035483

PATIENT
  Age: 81 Year
  Sex: Male

DRUGS (4)
  1. INSULIN LISPRO [Suspect]
     Active Substance: INSULIN LISPRO
     Indication: TYPE 2 DIABETES MELLITUS
     Dosage: INSULIN DOSE WAS 46 UNITS/DAY
  2. INSULIN LISPRO [Suspect]
     Active Substance: INSULIN LISPRO
     Dosage: REDUCED TO 24 UNITS/DAY
  3. INSULIN GLARGINE [Suspect]
     Active Substance: INSULIN GLARGINE
     Dosage: REDUCED TO 24 UNITS/DAY
  4. INSULIN GLARGINE [Suspect]
     Active Substance: INSULIN GLARGINE
     Indication: TYPE 2 DIABETES MELLITUS
     Dosage: INSULIN DOSE WAS 46 UNITS/DAY

REACTIONS (3)
  - Secondary amyloidosis [Unknown]
  - Lipohypertrophy [Unknown]
  - Diabetes mellitus inadequate control [Recovering/Resolving]
